FAERS Safety Report 7391116-9 (Version None)
Quarter: 2011Q2

REPORT INFORMATION
  Report Type: 
  Country: None (occurrence: None)
  Receive Date: 20110404
  Receipt Date: 20110322
  Transmission Date: 20111010
  Serious: Yes (Other)
  Sender: FDA-Public Use
  Company Number: JP-ELI_LILLY_AND_COMPANY-JP201103007404

PATIENT
  Age: 67 Year
  Sex: Male

DRUGS (4)
  1. LENDORMIN [Concomitant]
  2. ZYPREXA [Suspect]
     Dosage: 5 MG, QD
     Dates: start: 20110323
  3. ZYPREXA [Suspect]
     Dosage: 20 MG, QD
     Dates: end: 20110322
  4. BENZALIN [Concomitant]

REACTIONS (1)
  - WHITE BLOOD CELL COUNT DECREASED [None]
